FAERS Safety Report 10885902 (Version 1)
Quarter: 2015Q1

REPORT INFORMATION
  Report Type: Spontaneous
  Country: US (occurrence: US)
  Receive Date: 20150304
  Receipt Date: 20150304
  Transmission Date: 20150721
  Serious: Yes (Death)
  Sender: FDA-Public Use
  Company Number: US-BANPHARM-20153566

PATIENT
  Age: 42 Year
  Sex: Male

DRUGS (5)
  1. DIPHENHYDRAMINE UNKNOWN PRODUCT [Suspect]
     Active Substance: DIPHENHYDRAMINE
  2. OXYCODONE [Suspect]
     Active Substance: OXYCODONE
  3. ALPRAZOLAM. [Suspect]
     Active Substance: ALPRAZOLAM
  4. METOPROLOL [Suspect]
     Active Substance: METOPROLOL
  5. COCAINE [Suspect]
     Active Substance: COCAINE

REACTIONS (2)
  - Drug abuse [Fatal]
  - Exposure via ingestion [None]
